FAERS Safety Report 5532338-9 (Version None)
Quarter: 2007Q4

REPORT INFORMATION
  Report Type: 
  Country: None (occurrence: None)
  Receive Date: 20071129
  Receipt Date: 20071124
  Transmission Date: 20080405
  Serious: Yes (Other)
  Sender: FDA-Public Use
  Company Number: CHPA2007US12575

PATIENT
  Age: 70 Year
  Sex: Female

DRUGS (2)
  1. GAS-X CHEWABLE TABLETS CHERRY CREME (NCH)(SIMETHICONE) CHEWABLE TABLET [Suspect]
     Indication: ABDOMINAL DISTENSION
     Dosage: 80 MG, ONCE/SINGLE, ORAL
     Route: 048
     Dates: start: 20071123
  2. ANTI-DIABETICS (NO INGREDIENTS/SUBSTANCES) [Concomitant]

REACTIONS (1)
  - HAEMATOCHEZIA [None]
